FAERS Safety Report 9316875 (Version 3)
Quarter: 2013Q4

REPORT INFORMATION
  Report Type: Spontaneous
  Country: GB (occurrence: None)
  Receive Date: 20130523
  Receipt Date: 20131011
  Transmission Date: 20140711
  Serious: Yes (Hospitalization, Other)
  Sender: FDA-Public Use
  Company Number: KAD201305-000573

PATIENT
  Age: 55 Year
  Sex: Female
  Weight: 75 kg

DRUGS (9)
  1. RIBAVIRIN [Suspect]
     Indication: CHRONIC HEPATITIS C
     Dosage: TABLET, 400 MG, TWICE DAILY, ORAL
     Route: 048
     Dates: start: 20121204, end: 20121213
  2. INCIVO (TELAPREVIR) [Suspect]
     Indication: CHRONIC HEPATITIS C
     Dosage: TABLET, 750 MG, THRICE DAILY, ORAL
     Route: 048
     Dates: start: 20121023, end: 20121207
  3. PEGINTERFERON ALFA-2B (INTERFERON ALFA-2B) [Suspect]
     Indication: CHRONIC HEPATITIS C
     Dosage: INJECTION, 100 MCG, SUBCUTANEOUS
     Route: 058
     Dates: start: 20121023, end: 20121207
  4. TRIMETHOPRIM (TRIMETHOPRIM) [Concomitant]
  5. XYLOPROCT (HYDROCORTISONE ACETATE, HYDROCORTISONE ACETATE MICRO, LIDOCAINE, LIGNOCAINE)? [Concomitant]
  6. ACETAMINOPHEN  (PARACETAMOL) [Concomitant]
  7. FOSTAIR (BECLOMETASONE DIPROPIONATE, FORMETEROL FUMARATE DIHYDRATE) [Concomitant]
  8. CETIRIZINE HYDROCHLORIDE [Concomitant]
  9. SALMOL (SALBUTAMOL SULFATE) [Concomitant]

REACTIONS (32)
  - Vertigo [None]
  - Nausea [None]
  - Renal failure acute [None]
  - Anaemia [None]
  - Dry skin [None]
  - Eczema [None]
  - Fatigue [None]
  - Haemorrhoids [None]
  - Headache [None]
  - Malaise [None]
  - Oral candidiasis [None]
  - Pain in extremity [None]
  - Pain in extremity [None]
  - Pharyngitis [None]
  - Proctalgia [None]
  - Rash [None]
  - Malaise [None]
  - Urinary tract infection [None]
  - Vomiting [None]
  - Dehydration [None]
  - Rash generalised [None]
  - Platelet count decreased [None]
  - Cystitis [None]
  - Rash pustular [None]
  - Pharyngitis [None]
  - Hypovolaemia [None]
  - Drug interaction [None]
  - Rash [None]
  - Painful defaecation [None]
  - Rectal spasm [None]
  - Neutrophil count decreased [None]
  - White blood cell count decreased [None]
